FAERS Safety Report 18217474 (Version 2)
Quarter: 2020Q3

REPORT INFORMATION
  Report Type: Spontaneous
  Country: US (occurrence: US)
  Receive Date: 20200901
  Receipt Date: 20200924
  Transmission Date: 20201103
  Serious: Yes (Other)
  Sender: FDA-Public Use
  Company Number: US-IGSA-BIG0011069

PATIENT
  Age: 60 Year
  Sex: Female
  Weight: 68.9 kg

DRUGS (3)
  1. LISINOPRIL. [Concomitant]
     Active Substance: LISINOPRIL
     Dosage: UNK UNK, QD
     Route: 048
  2. GAMUNEX?C [Suspect]
     Active Substance: HUMAN IMMUNOGLOBULIN G
     Indication: IMMUNODEFICIENCY COMMON VARIABLE
     Dosage: 30 GRAM, Q.M.T.
     Route: 042
     Dates: start: 20200813, end: 20200813
  3. GAMUNEX?C [Suspect]
     Active Substance: HUMAN IMMUNOGLOBULIN G
     Dosage: 30 GRAM, Q.M.T.
     Route: 042
     Dates: start: 20190528

REACTIONS (7)
  - Lip swelling [Recovered/Resolved]
  - Dysphagia [Recovered/Resolved]
  - Swelling [Recovered/Resolved]
  - Lymphadenopathy [Recovered/Resolved]
  - Swelling face [Recovered/Resolved]
  - Infusion related reaction [Recovered/Resolved]
  - Dyspepsia [Recovered/Resolved]

NARRATIVE: CASE EVENT DATE: 20200813
